FAERS Safety Report 21859554 (Version 3)
Quarter: 2023Q1

REPORT INFORMATION
  Report Type: Spontaneous
  Country: CA (occurrence: CA)
  Receive Date: 20230113
  Receipt Date: 20230327
  Transmission Date: 20230418
  Serious: Yes (Other)
  Sender: FDA-Public Use
  Company Number: CA-PFIZER INC-202201064148

PATIENT
  Age: 79 Year
  Sex: Female

DRUGS (1)
  1. ABRILADA [Suspect]
     Active Substance: ADALIMUMAB-AFZB
     Indication: Crohn^s disease
     Dosage: 40 MG, EVERY 2 WEEKS, PREFILLED PEN
     Route: 058
     Dates: start: 20220531

REACTIONS (15)
  - Nerve injury [Recovering/Resolving]
  - Drug ineffective [Unknown]
  - Product use complaint [Unknown]
  - Sciatica [Unknown]
  - Arthritis [Recovering/Resolving]
  - Back pain [Unknown]
  - Arthralgia [Unknown]
  - Abdominal pain [Not Recovered/Not Resolved]
  - Pain [Not Recovered/Not Resolved]
  - Condition aggravated [Not Recovered/Not Resolved]
  - Asthenia [Unknown]
  - Accident [Recovering/Resolving]
  - Walking aid user [Unknown]
  - Fatigue [Not Recovered/Not Resolved]
  - Constipation [Not Recovered/Not Resolved]

NARRATIVE: CASE EVENT DATE: 20220101
